FAERS Safety Report 14957541 (Version 1)
Quarter: 2018Q3

REPORT INFORMATION
  Report Type: Spontaneous
  Country: US (occurrence: US)
  Receive Date: 20180531
  Receipt Date: 20180531
  Transmission Date: 20181010
  Serious: No
  Sender: FDA-Public Use
  Company Number: US-MALLINCKRODT-T201801797

PATIENT
  Sex: Male

DRUGS (1)
  1. QUETIAPINE. [Suspect]
     Active Substance: QUETIAPINE
     Indication: SLEEP DISORDER
     Dosage: 50MG, ONCE NIGHTLY
     Route: 048
     Dates: end: 20180417

REACTIONS (4)
  - Breast pain [Unknown]
  - Gynaecomastia [Unknown]
  - Breast mass [Unknown]
  - Breast swelling [Unknown]
